FAERS Safety Report 7378844-6 (Version None)
Quarter: 2011Q1

REPORT INFORMATION
  Report Type: 
  Country: None (occurrence: None)
  Receive Date: 20110328
  Receipt Date: 20110318
  Transmission Date: 20110831
  Serious: Yes (Hospitalization)
  Sender: FDA-Public Use
  Company Number: PHHY2009BR04666

PATIENT
  Age: 85 Year
  Sex: Female
  Weight: 57 kg

DRUGS (7)
  1. WARFARIN SODIUM [Concomitant]
     Indication: COAGULOPATHY
     Dosage: 1 TAB/DAY (5 MG)
     Route: 048
  2. STARLIX [Suspect]
     Dosage: 1 TABLET OF 120 MG  TWICE DAILY
     Route: 048
  3. MODURETIC 5-50 [Concomitant]
     Indication: HYPERTENSION
     Dosage: 1 TAB/DAY
     Route: 048
  4. STARLIX [Suspect]
     Indication: DIABETES MELLITUS
     Dosage: 1/2 TAB DAILY
     Route: 048
  5. RETEMIC UD [Concomitant]
     Indication: CYSTITIS
     Dosage: 1 TAB/DAY
     Route: 048
  6. STARLIX [Suspect]
     Dosage: 1 TAB/DAY
     Route: 048
  7. MODURETIC 5-50 [Concomitant]
     Indication: URINARY RETENTION

REACTIONS (4)
  - CEREBROVASCULAR ACCIDENT [None]
  - BALANCE DISORDER [None]
  - FALL [None]
  - PELVIC FRACTURE [None]
